FAERS Safety Report 16581541 (Version 1)
Quarter: 2019Q3

REPORT INFORMATION
  Report Type: Spontaneous
  Country: US (occurrence: US)
  Receive Date: 20190716
  Receipt Date: 20190716
  Transmission Date: 20191004
  Serious: No
  Sender: FDA-Public Use
  Company Number: US-CHILTERN-US-2019-000608

PATIENT
  Age: 78 Year
  Sex: Female

DRUGS (8)
  1. ASPIRIN 81 [Concomitant]
     Active Substance: ASPIRIN
     Dosage: 81 MG, QD
     Route: 048
  2. SIMVASTATIN. [Concomitant]
     Active Substance: SIMVASTATIN
     Dosage: 10 MG, QD
     Route: 048
  3. LUMIGAN [Concomitant]
     Active Substance: BIMATOPROST
     Indication: GLAUCOMA
     Dosage: UNK, QD
     Route: 047
     Dates: start: 20171116
  4. LISINOPRIL. [Concomitant]
     Active Substance: LISINOPRIL
     Dosage: 20 MG, QD
  5. METHIMAZOLE. [Concomitant]
     Active Substance: METHIMAZOLE
     Dosage: 5 MG, QD
     Route: 048
  6. RHOPRESSA [Suspect]
     Active Substance: NETARSUDIL MESYLATE
     Indication: GLAUCOMA
     Dosage: UNKNOWN, QD
     Route: 047
     Dates: start: 20181115, end: 20190301
  7. LIPITOR [Concomitant]
     Active Substance: ATORVASTATIN CALCIUM
     Dosage: 10 MG, QD
     Route: 048
  8. BYSTOLIC [Concomitant]
     Active Substance: NEBIVOLOL HYDROCHLORIDE
     Dosage: 10 MG, QD
     Route: 048

REACTIONS (1)
  - Blepharitis allergic [Recovered/Resolved]

NARRATIVE: CASE EVENT DATE: 20190201
